FAERS Safety Report 20519361 (Version 2)
Quarter: 2022Q1

REPORT INFORMATION
  Report Type: Spontaneous
  Country: JP (occurrence: JP)
  Receive Date: 20220225
  Receipt Date: 20220322
  Transmission Date: 20220423
  Serious: No
  Sender: FDA-Public Use
  Company Number: JP-GLAXOSMITHKLINE-JP2022JPN029803

PATIENT
  Age: 72 Year
  Sex: Male

DRUGS (8)
  1. SOTROVIMAB [Suspect]
     Active Substance: SOTROVIMAB
     Indication: COVID-19
     Dosage: 500 MG/100 ML/30 MIN
     Dates: start: 20220217, end: 20220217
  2. SOTROVIMAB [Suspect]
     Active Substance: SOTROVIMAB
     Indication: COVID-19 prophylaxis
  3. MICARDIS [Concomitant]
     Active Substance: TELMISARTAN
     Dosage: 1 TABLET, QD, AFTER BREAKFAST
  4. BENZBROMARONE TABLETS [Concomitant]
     Dosage: 1 TABLET, QD, AFTER BREAKFAST
  5. CLOPIDOGREL BISULFATE [Concomitant]
     Active Substance: CLOPIDOGREL BISULFATE
     Dosage: 1 TABLET, QD, AFTER BREAKFAST
  6. NEXIUM [Concomitant]
     Active Substance: ESOMEPRAZOLE MAGNESIUM
     Dosage: 1 C, QD, AFTER BREAKFAST
  7. ROSUVASTATIN DSEP TABLETS [Concomitant]
     Dosage: 2 TABLETS, QD, AFTER DINNER
  8. EZETIMIBE TABLET [Concomitant]
     Dosage: 1 TABLET, QD, AFTER BREAKFAST

REACTIONS (1)
  - Flushing [Unknown]

NARRATIVE: CASE EVENT DATE: 20220217
